FAERS Safety Report 12250274 (Version 1)
Quarter: 2016Q2

REPORT INFORMATION
  Report Type: Report from Study
  Country: US (occurrence: US)
  Receive Date: 20160408
  Receipt Date: 20160408
  Transmission Date: 20160815
  Serious: Yes (Hospitalization)
  Sender: FDA-Public Use
  Company Number: US-ABBVIE-16K-163-1597225-00

PATIENT
  Age: 71 Year
  Sex: Male
  Weight: 68.1 kg

DRUGS (2)
  1. HUMIRA [Suspect]
     Active Substance: ADALIMUMAB
     Indication: PSORIATIC ARTHROPATHY
     Route: 058
     Dates: start: 2010, end: 2010
  2. HUMIRA [Suspect]
     Active Substance: ADALIMUMAB
     Dosage: ONE WEEK LATER
     Route: 058
     Dates: start: 2010, end: 20160226

REACTIONS (5)
  - Coronary artery occlusion [Recovered/Resolved]
  - Urethral pain [Recovered/Resolved]
  - Hypertension [Recovered/Resolved]
  - Urethral pain [Recovered/Resolved]
  - Hypertension [Recovered/Resolved]

NARRATIVE: CASE EVENT DATE: 2015
